FAERS Safety Report 11802316 (Version 1)
Quarter: 2015Q4

REPORT INFORMATION
  Report Type: Spontaneous
  Country: US (occurrence: None)
  Receive Date: 20151203
  Receipt Date: 20151203
  Transmission Date: 20160305
  Serious: Yes (Life-Threatening)
  Sender: FDA-Public Use
  Company Number: None

PATIENT
  Age: 33 Year
  Sex: Female
  Weight: 102.97 kg

DRUGS (3)
  1. MEDROXYPR AC MEDROXYPROGESTERONE ACETATE 150 MG [Suspect]
     Active Substance: MEDROXYPROGESTERONE ACETATE
     Indication: CONTRACEPTION
     Dosage: 1 INJECTION  EVERY 12-3 WEEKS INTO THE MUSCLE
     Route: 028
     Dates: start: 20151130, end: 20151130
  2. FLONASE [Concomitant]
     Active Substance: FLUTICASONE PROPIONATE
  3. PRENATAL VITAMINS [Concomitant]
     Active Substance: VITAMINS

REACTIONS (18)
  - Skin burning sensation [None]
  - Chills [None]
  - Dizziness [None]
  - Asthenia [None]
  - Headache [None]
  - Dysphonia [None]
  - Nausea [None]
  - Swelling [None]
  - Erythema [None]
  - Eye irritation [None]
  - Pruritus [None]
  - Feeling hot [None]
  - Urticaria [None]
  - Dyspnoea [None]
  - Chest pain [None]
  - Flushing [None]
  - Lacrimation increased [None]
  - Body temperature increased [None]

NARRATIVE: CASE EVENT DATE: 20151130
